FAERS Safety Report 5532159-7 (Version None)
Quarter: 2007Q4

REPORT INFORMATION
  Report Type: 
  Country: None (occurrence: None)
  Receive Date: 20071128
  Receipt Date: 20071112
  Transmission Date: 20080405
  Serious: Yes (Hospitalization)
  Sender: FDA-Public Use
  Company Number: S07-ESP-06039-01

PATIENT
  Age: 76 Year
  Sex: Male

DRUGS (8)
  1. MEMANTINE HCL [Suspect]
     Indication: COGNITIVE DISORDER
     Dates: end: 20070321
  2. ARICEPT [Suspect]
     Indication: COGNITIVE DISORDER
     Dates: end: 20070321
  3. AMOXICILLIN [Suspect]
     Dosage: 3000 MG QD IV
     Route: 042
     Dates: start: 20070311, end: 20070313
  4. SINEMET [Concomitant]
  5. DOHUPAL (VENLAPAXINE HYDROCHLORIDE) [Concomitant]
  6. PROSCAR (PINASTERIDE) [Concomitant]
  7. DAFLON (DIOSMIN) [Concomitant]
  8. DORKEN [Concomitant]

REACTIONS (7)
  - CARDIAC FAILURE CONGESTIVE [None]
  - CHOLESTASIS [None]
  - CYTOLYTIC HEPATITIS [None]
  - HEPATOTOXICITY [None]
  - RASH [None]
  - RESPIRATORY FAILURE [None]
  - RESPIRATORY TRACT INFECTION [None]
